FAERS Safety Report 5483390-0 (Version None)
Quarter: 2007Q4

REPORT INFORMATION
  Report Type: 
  Country: None (occurrence: None)
  Receive Date: 20071009
  Receipt Date: 20071009
  Transmission Date: 20080405
  Serious: Yes (Other)
  Sender: FDA-Public Use
  Company Number: None

PATIENT
  Sex: Female
  Weight: 53.5244 kg

DRUGS (2)
  1. PRIMIDONE [Suspect]
     Indication: ESSENTIAL TREMOR
     Dosage: TID AT FIRST THEN BID PO
     Route: 048
     Dates: start: 20061020
  2. NEURONTIN [Concomitant]

REACTIONS (2)
  - HALLUCINATION [None]
  - TREMOR [None]
